FAERS Safety Report 6665217-4 (Version None)
Quarter: 2010Q1

REPORT INFORMATION
  Report Type: 
  Country: None (occurrence: None)
  Receive Date: 20100330
  Receipt Date: 20100317
  Transmission Date: 20100710
  Serious: Yes (Other)
  Sender: FDA-Public Use
  Company Number: 230494J10BRA

PATIENT
  Age: 51 Year
  Sex: Female

DRUGS (6)
  1. REBIF [Suspect]
     Indication: RELAPSING-REMITTING MULTIPLE SCLEROSIS
     Dosage: 22 MG, 1 IN 1 WEEKS, 44 MCG, I IN I WEEKS, 22 MG, 3 IN 1 WEEKS
     Dates: start: 20010101, end: 20080930
  2. REBIF [Suspect]
     Indication: RELAPSING-REMITTING MULTIPLE SCLEROSIS
     Dosage: 22 MG, 1 IN 1 WEEKS, 44 MCG, I IN I WEEKS, 22 MG, 3 IN 1 WEEKS
     Dates: start: 20080930, end: 20081030
  3. REBIF [Suspect]
     Indication: RELAPSING-REMITTING MULTIPLE SCLEROSIS
     Dosage: 22 MG, 1 IN 1 WEEKS, 44 MCG, I IN I WEEKS, 22 MG, 3 IN 1 WEEKS
     Dates: start: 20081030
  4. CAPTOPRIL [Concomitant]
  5. HYDROCHLOROTHIZIE (HYDROCHLOROTHIAZIDE) [Concomitant]
  6. DAFLON (CAPIVEN) [Concomitant]

REACTIONS (12)
  - BLOOD PRESSURE INCREASED [None]
  - HEADACHE [None]
  - HEPATIC ENZYME INCREASED [None]
  - INFLUENZA LIKE ILLNESS [None]
  - MAMMOGRAM ABNORMAL [None]
  - NEURALGIA [None]
  - OEDEMA PERIPHERAL [None]
  - PAIN [None]
  - PARAESTHESIA [None]
  - PAROSMIA [None]
  - SENSATION OF HEAVINESS [None]
  - VENOUS OCCLUSION [None]
